FAERS Safety Report 13773266 (Version 1)
Quarter: 2017Q3

REPORT INFORMATION
  Report Type: Spontaneous
  Country: US (occurrence: US)
  Receive Date: 20170720
  Receipt Date: 20170720
  Transmission Date: 20171127
  Serious: No
  Sender: FDA-Public Use
  Company Number: US-GALDERMA-US16006847

PATIENT
  Age: 64 Year
  Sex: Male

DRUGS (1)
  1. ORACEA [Suspect]
     Active Substance: DOXYCYCLINE
     Indication: PRODUCT USED FOR UNKNOWN INDICATION
     Route: 048

REACTIONS (2)
  - Hypersensitivity [Unknown]
  - Rash [Unknown]
